FAERS Safety Report 18741541 (Version 2)
Quarter: 2022Q1

REPORT INFORMATION
  Report Type: Spontaneous
  Country: US (occurrence: US)
  Receive Date: 20210114
  Receipt Date: 20220111
  Transmission Date: 20220424
  Serious: No
  Sender: FDA-Public Use
  Company Number: US-ABBVIE-20K-163-3477842-00

PATIENT
  Age: 71 Year
  Sex: Female
  Weight: 83.990 kg

DRUGS (3)
  1. DUOPA [Suspect]
     Active Substance: CARBIDOPA\LEVODOPA
     Indication: Parkinson^s disease
     Route: 050
     Dates: start: 20180306, end: 201803
  2. DUOPA [Suspect]
     Active Substance: CARBIDOPA\LEVODOPA
     Route: 050
     Dates: start: 20180326
  3. GOCOVRI [Concomitant]
     Active Substance: AMANTADINE
     Indication: Dyskinesia

REACTIONS (4)
  - Off label use [Unknown]
  - Fatigue [Unknown]
  - Device occlusion [Unknown]
  - Device physical property issue [Unknown]

NARRATIVE: CASE EVENT DATE: 20200601
